FAERS Safety Report 24807181 (Version 1)
Quarter: 2025Q1

REPORT INFORMATION
  Report Type: Report from Study
  Country: US (occurrence: US)
  Receive Date: 20250105
  Receipt Date: 20250105
  Transmission Date: 20250409
  Serious: Yes (Other)
  Sender: JOHNSON AND JOHNSON
  Company Number: US-JNJFOC-20241131428

PATIENT
  Age: 38 Year
  Sex: Female

DRUGS (2)
  1. SPRAVATO [Suspect]
     Active Substance: ESKETAMINE
     Indication: Depression
     Route: 045
     Dates: start: 20240813, end: 20240813
  2. SPRAVATO [Suspect]
     Active Substance: ESKETAMINE
     Route: 045
     Dates: start: 20240815, end: 20241224

REACTIONS (9)
  - Craniofacial fracture [Unknown]
  - Rash [Unknown]
  - Insomnia [Unknown]
  - Asthenia [Unknown]
  - Panic attack [Recovered/Resolved]
  - Anxiety [Unknown]
  - Blood pressure increased [Unknown]
  - Fatigue [Unknown]
  - Product dose omission issue [Unknown]

NARRATIVE: CASE EVENT DATE: 20240101
